FAERS Safety Report 10037875 (Version 1)
Quarter: 2014Q1

REPORT INFORMATION
  Report Type: Spontaneous
  Country: JP (occurrence: JP)
  Receive Date: 20140326
  Receipt Date: 20140326
  Transmission Date: 20141002
  Serious: Yes (Other)
  Sender: FDA-Public Use
  Company Number: JP-SA-2014SA034968

PATIENT
  Age: 60 Year
  Sex: 0

DRUGS (4)
  1. MYSLEE [Suspect]
     Indication: PRODUCT USED FOR UNKNOWN INDICATION
     Route: 048
  2. ANTIHISTAMINES [Concomitant]
     Route: 048
  3. ANTINEOPLASTIC AGENTS [Concomitant]
     Route: 048
  4. ANTINEOPLASTIC AGENTS [Concomitant]
     Route: 048

REACTIONS (1)
  - Road traffic accident [Unknown]
